FAERS Safety Report 21017487 (Version 1)
Quarter: 2022Q2

REPORT INFORMATION
  Report Type: Spontaneous
  Country: US (occurrence: US)
  Receive Date: 20220628
  Receipt Date: 20220628
  Transmission Date: 20220720
  Serious: Yes (Hospitalization)
  Sender: FDA-Public Use
  Company Number: US-PFIZER INC-202200893549

PATIENT
  Age: 84 Year
  Sex: Female
  Weight: 72.57 kg

DRUGS (2)
  1. PAXLOVID [Suspect]
     Active Substance: NIRMATRELVIR\RITONAVIR
     Indication: COVID-19 treatment
     Dosage: 3 PILLS IN THE MORNING AND 3 PILLS AT NIGHT, FOR 5 DAYS, BY MOUTH
     Route: 048
     Dates: start: 20220607, end: 20220612
  2. SIMVASTATIN [Concomitant]
     Active Substance: SIMVASTATIN
     Indication: Blood cholesterol increased
     Dosage: 20 MG, 1X/DAY, AT 5 PM

REACTIONS (4)
  - Vomiting [Recovered/Resolved]
  - Retching [Recovered/Resolved]
  - Dehydration [Recovered/Resolved]
  - Contraindicated product administered [Unknown]

NARRATIVE: CASE EVENT DATE: 20220614
